FAERS Safety Report 4511278-8 (Version None)
Quarter: 2004Q4

REPORT INFORMATION
  Report Type: 
  Country: None (occurrence: None)
  Receive Date: 20041123
  Receipt Date: 20041123
  Transmission Date: 20050328
  Serious: Yes (Other)
  Sender: FDA-Public Use
  Company Number: None

PATIENT
  Sex: Female
  Weight: 78.4723 kg

DRUGS (8)
  1. CORICIDIN  D TABLETS [Suspect]
     Dosage: ORAL
     Route: 048
  2. ROBITUSSIN -CF [Concomitant]
  3. HALL'S MENTHO-LYPTUS [Concomitant]
  4. DIMETAPP [Concomitant]
  5. CONTAC [Concomitant]
  6. PREMARIN [Concomitant]
  7. VITAMIN E [Concomitant]
  8. CALCIUM [Concomitant]

REACTIONS (25)
  - ASTHENIA [None]
  - BACK INJURY [None]
  - BACK PAIN [None]
  - CARDIAC FLUTTER [None]
  - CEREBROVASCULAR ACCIDENT [None]
  - CHEST PAIN [None]
  - DIZZINESS [None]
  - GASTRIC ULCER [None]
  - GASTRITIS [None]
  - HEAD INJURY [None]
  - HYPOAESTHESIA [None]
  - HYPOAESTHESIA ORAL [None]
  - INFARCTION [None]
  - LOSS OF CONSCIOUSNESS [None]
  - MONOPLEGIA [None]
  - NERVOUSNESS [None]
  - OBESITY [None]
  - PALPITATIONS [None]
  - PARAESTHESIA [None]
  - PARALYSIS [None]
  - PORENCEPHALY [None]
  - PREGNANCY [None]
  - SMOKER [None]
  - STRESS SYMPTOMS [None]
  - VICTIM OF SPOUSAL ABUSE [None]
